FAERS Safety Report 8250037-X (Version None)
Quarter: 2012Q2

REPORT INFORMATION
  Report Type: 
  Country: None (occurrence: None)
  Receive Date: 20120402
  Receipt Date: 20120323
  Transmission Date: 20120825
  Serious: Yes (Hospitalization)
  Sender: FDA-Public Use
  Company Number: ES-ELI_LILLY_AND_COMPANY-ES201203007204

PATIENT
  Sex: Female
  Weight: 56 kg

DRUGS (11)
  1. FORTEO [Suspect]
     Indication: OSTEOPOROSIS
     Dosage: 20 UG, QD
     Route: 058
     Dates: start: 20120107, end: 20120315
  2. SINVASTATINA [Concomitant]
     Indication: BLOOD CHOLESTEROL
     Dosage: 40 MG, QD
     Route: 048
  3. VENTOLIN                                /SCH/ [Concomitant]
     Indication: ASTHMA
     Dosage: UNK, PRN
     Route: 055
  4. PREDNISONE [Concomitant]
     Indication: ASTHMA
     Dosage: 30 MG, QD
  5. ATROVENT [Concomitant]
     Indication: ASTHMA
     Dosage: 1 DF, PRN
     Route: 055
  6. VERISCAL D [Concomitant]
     Indication: OSTEOPOROSIS
     Dosage: UNK, BID
     Route: 048
  7. HYDROCHLOROTHIAZIDE [Concomitant]
     Indication: FLUID RETENTION
     Dosage: 1 DF, QD
     Route: 048
  8. SINGULAIR [Concomitant]
     Indication: ASTHMA
     Dosage: 1 DF, QD
     Route: 048
  9. PREDNISOLONE [Concomitant]
     Indication: ASTHMA
     Dosage: 1 DF, QD
     Route: 048
  10. INSULIN [Concomitant]
     Indication: DIABETES MELLITUS
     Route: 058
  11. FUROSEMIDE [Concomitant]
     Indication: FLUID RETENTION
     Dosage: 40 MG, QD
     Route: 048

REACTIONS (8)
  - BLINDNESS [None]
  - HEADACHE [None]
  - DIZZINESS [None]
  - VOMITING [None]
  - TINNITUS [None]
  - GOITRE [None]
  - ANXIETY [None]
  - NERVOUSNESS [None]
